FAERS Safety Report 5054485-0 (Version None)
Quarter: 2006Q2

REPORT INFORMATION
  Report Type: 
  Country: None (occurrence: None)
  Receive Date: 20060616
  Receipt Date: 20060313
  Transmission Date: 20061013
  Serious: Yes (Death)
  Sender: FDA-Public Use
  Company Number: 223000

PATIENT
  Age: 52 Year
  Sex: Male

DRUGS (1)
  1. AVASTIN [Suspect]
     Indication: BLADDER CANCER
     Dosage: 400 MG, INTRAVENOUS
     Route: 030

REACTIONS (1)
  - INTESTINAL OBSTRUCTION [None]
